FAERS Safety Report 7386659-8 (Version None)
Quarter: 2011Q1

REPORT INFORMATION
  Report Type: 
  Country: None (occurrence: None)
  Receive Date: 20110331
  Receipt Date: 20110328
  Transmission Date: 20110831
  Serious: Yes (Death, Hospitalization)
  Sender: FDA-Public Use
  Company Number: US-ROCHE-768152

PATIENT
  Sex: Female

DRUGS (2)
  1. TAXOL [Suspect]
     Route: 065
  2. AVASTIN [Suspect]
     Route: 065
     Dates: start: 20100517, end: 20101231

REACTIONS (1)
  - DEATH [None]
